FAERS Safety Report 7152936-9 (Version None)
Quarter: 2010Q4

REPORT INFORMATION
  Report Type: 
  Country: None (occurrence: None)
  Receive Date: 20101213
  Receipt Date: 20101203
  Transmission Date: 20110411
  Serious: Yes (Death, Other)
  Sender: FDA-Public Use
  Company Number: JP-GENZYME-THYM-1001420

PATIENT
  Sex: Male
  Weight: 50 kg

DRUGS (47)
  1. THYMOGLOBULIN [Suspect]
     Indication: BONE MARROW CONDITIONING REGIMEN
     Dosage: 125 MG, QD
     Route: 042
     Dates: start: 20100129, end: 20100129
  2. HYDROXYZINE HCL [Concomitant]
     Indication: PREMEDICATION
     Dosage: 25 MG, UNK
     Route: 042
     Dates: start: 20100129
  3. HYDROXYZINE HCL [Concomitant]
     Indication: ALLERGY PROPHYLAXIS
     Dosage: 25 MG, UNK
     Dates: start: 20100129
  4. HYDROCORTISONE SODIUM SUCCINATE [Concomitant]
     Indication: PREMEDICATION
     Dosage: 100 MG, UNK
     Route: 042
     Dates: start: 20100129, end: 20100723
  5. ZOSYN [Concomitant]
     Indication: LIVER ABSCESS
     Dosage: 4.5 G, QID
     Route: 042
     Dates: start: 20100112, end: 20100221
  6. URSODIOL [Concomitant]
     Indication: LIVER ABSCESS
     Dosage: 200 MG/ML, TID
     Route: 048
     Dates: start: 20100129
  7. CIPROFLOXACIN HYDROCHLORIDE [Concomitant]
     Indication: ANTIBIOTIC PROPHYLAXIS
     Dosage: 200 MG, TID
     Route: 048
     Dates: start: 20100129, end: 20100211
  8. ACYCLOVIR [Concomitant]
     Indication: ANTIVIRAL PROPHYLAXIS
     Dosage: 200 MG, UNK
     Route: 048
     Dates: start: 20100129, end: 20100225
  9. ACYCLOVIR [Concomitant]
     Dosage: UNK
     Dates: start: 20100215, end: 20100721
  10. OMEPRAZOLE [Concomitant]
     Indication: PROPHYLAXIS AGAINST GASTROINTESTINAL ULCER
     Dosage: UNK
     Dates: start: 20100109, end: 20100225
  11. OMEPRAZOLE [Concomitant]
     Dosage: UNK
     Dates: start: 20100216, end: 20100316
  12. OMEPRAZOLE [Concomitant]
     Dosage: UNK
     Dates: start: 20100316
  13. ACETAMINOPHEN [Concomitant]
     Indication: ALLERGY PROPHYLAXIS
     Dosage: UNK
     Dates: start: 20100129, end: 20100723
  14. CYCLOPHOSPHAMIDE [Concomitant]
     Indication: ACUTE MYELOID LEUKAEMIA
     Dosage: UNK
     Dates: start: 20100205, end: 20100206
  15. MESNA [Concomitant]
     Indication: PROPHYLAXIS
     Dosage: UNK
     Dates: start: 20100205, end: 20100206
  16. CYCLOSPORINE [Concomitant]
     Indication: PROPHYLAXIS AGAINST GRAFT VERSUS HOST DISEASE
     Dosage: UNK
     Dates: start: 20100207, end: 20100318
  17. CYCLOSPORINE [Concomitant]
     Dosage: UNK
     Dates: start: 20100317, end: 20100520
  18. CYCLOSPORINE [Concomitant]
     Dosage: UNK
     Dates: start: 20100801, end: 20100808
  19. METHOTREXATE [Concomitant]
     Indication: PROPHYLAXIS AGAINST GRAFT VERSUS HOST DISEASE
     Dosage: UNK
     Dates: start: 20100209, end: 20100219
  20. ACYCLOVIR [Concomitant]
     Dosage: UNK
     Dates: start: 20100215, end: 20100721
  21. ACYCLOVIR [Concomitant]
     Dosage: UNK
     Dates: start: 20100316, end: 20100507
  22. PANIPENEM [Concomitant]
     Indication: LIVER ABSCESS
     Dosage: UNK
     Dates: start: 20100221, end: 20100228
  23. CALCIUM FOLINATE [Concomitant]
     Indication: PROPHYLAXIS
     Dosage: UNK
     Dates: start: 20100223, end: 20100224
  24. FILGRASTIM [Concomitant]
     Indication: NEUTROPENIA
     Dosage: UNK
     Dates: start: 20100213, end: 20100507
  25. MICAFUNGIN SODIUM [Concomitant]
     Indication: ANTIFUNGAL PROPHYLAXIS
     Dosage: UNK
     Dates: start: 20100204, end: 20100302
  26. ALLOPURINOL [Concomitant]
     Indication: PROPHYLAXIS
     Dosage: UNK
     Dates: start: 20100709
  27. VORICONAZOLE [Concomitant]
     Indication: ANTIFUNGAL PROPHYLAXIS
     Dosage: UNK
     Dates: start: 20100609, end: 20100625
  28. VORICONAZOLE [Concomitant]
     Dosage: UNK
     Dates: start: 20100318, end: 20100415
  29. ZOPICLONE [Concomitant]
     Indication: INSOMNIA
     Dosage: UNK
     Dates: start: 20100318
  30. ITRACONAZOLE [Concomitant]
     Indication: ANTIFUNGAL PROPHYLAXIS
     Dosage: UNK
     Dates: start: 20100318
  31. FLUNITRAZEPAM [Concomitant]
     Indication: INSOMNIA
     Dosage: UNK
     Dates: start: 20100323, end: 20100422
  32. SULFAMETHOPRIM [Concomitant]
     Indication: ANTIFUNGAL PROPHYLAXIS
     Dosage: UNK
     Dates: start: 20100326
  33. MAGNESIUM OXIDE [Concomitant]
     Indication: CONSTIPATION PROPHYLAXIS
     Dosage: UNK
     Dates: start: 20100519
  34. LEVOFLOXACIN [Concomitant]
     Indication: ANTIBIOTIC PROPHYLAXIS
     Dosage: UNK
     Dates: start: 20100427, end: 20100722
  35. ZOLPIDEM TARTRATE [Concomitant]
     Indication: INSOMNIA
     Dosage: UNK
     Dates: start: 20100108, end: 20100320
  36. GEMTUZUMAB OZOGAMICIN [Concomitant]
     Indication: ACUTE MYELOID LEUKAEMIA RECURRENT
     Dosage: UNK
     Dates: start: 20100513, end: 20100513
  37. GEMTUZUMAB OZOGAMICIN [Concomitant]
     Dosage: UNK
     Dates: start: 20100527, end: 20100527
  38. GEMTUZUMAB OZOGAMICIN [Concomitant]
     Dosage: UNK
     Dates: start: 20100709, end: 20100709
  39. GRANISETRON HCL [Concomitant]
     Indication: PROPHYLAXIS OF NAUSEA AND VOMITING
     Dosage: UNK
     Dates: start: 20100727, end: 20100731
  40. CYTARABINE [Concomitant]
     Indication: ACUTE MYELOID LEUKAEMIA
     Dosage: UNK
     Dates: start: 20100727, end: 20100806
  41. FLUDARABINE PHOSPHATE [Concomitant]
     Indication: ACUTE MYELOID LEUKAEMIA
     Dosage: UNK
     Dates: start: 20100727, end: 20100731
  42. METHYLPREDNISOLONE SODIUM SUCCINATE [Concomitant]
     Indication: PROPHYLAXIS
     Dosage: UNK
     Dates: start: 20100727
  43. IDARUBICIN HYDROCHLORIDE [Concomitant]
     Indication: ACUTE MYELOID LEUKAEMIA
     Dosage: UNK
     Dates: start: 20100727, end: 20100729
  44. LENOGRASTIM [Concomitant]
     Indication: NEUTROPENIA
     Dosage: UNK
     Dates: start: 20100807, end: 20100809
  45. RED BLOOD CELLS [Concomitant]
     Indication: ACUTE MYELOID LEUKAEMIA
     Dosage: UNK
  46. PLATELETS [Concomitant]
     Indication: ACUTE MYELOID LEUKAEMIA
     Dosage: UNK
  47. TOTAL BODY RADIATION THERAPY [Concomitant]
     Indication: ACUTE MYELOID LEUKAEMIA
     Dosage: UNK
     Dates: start: 20090331, end: 20100202

REACTIONS (26)
  - ABNORMAL BEHAVIOUR [None]
  - ACUTE GRAFT VERSUS HOST DISEASE IN LIVER [None]
  - ACUTE GRAFT VERSUS HOST DISEASE IN SKIN [None]
  - ANTITHROMBIN III DECREASED [None]
  - BLOOD BILIRUBIN INCREASED [None]
  - CONDITION AGGRAVATED [None]
  - CYTOMEGALOVIRUS TEST POSITIVE [None]
  - DISEASE RECURRENCE [None]
  - DISSEMINATED INTRAVASCULAR COAGULATION [None]
  - FEBRILE NEUTROPENIA [None]
  - FUNGAL TEST POSITIVE [None]
  - HEPATIC FUNCTION ABNORMAL [None]
  - HERPES ZOSTER [None]
  - HICCUPS [None]
  - HYPOMAGNESAEMIA [None]
  - MOUTH HAEMORRHAGE [None]
  - NAUSEA [None]
  - OEDEMA PERIPHERAL [None]
  - ORAL DISORDER [None]
  - PETECHIAE [None]
  - PYREXIA [None]
  - RENAL IMPAIRMENT [None]
  - TACHYCARDIA [None]
  - VOMITING [None]
  - WEIGHT INCREASED [None]
  - WHITE BLOOD CELL COUNT DECREASED [None]
